FAERS Safety Report 4914959-7 (Version None)
Quarter: 2006Q1

REPORT INFORMATION
  Report Type: 
  Country: None (occurrence: None)
  Receive Date: 20060215
  Receipt Date: 20060215
  Transmission Date: 20060701
  Serious: Yes (Hospitalization)
  Sender: FDA-Public Use
  Company Number: None

PATIENT
  Sex: Female
  Weight: 49.8957 kg

DRUGS (3)
  1. VICODIN [Suspect]
     Indication: PAIN
     Dosage: 2 TAB , PO [PRIOR TO ADMISSION]
     Route: 048
  2. VITAMINS [Concomitant]
  3. PREVACID [Concomitant]

REACTIONS (4)
  - DIZZINESS [None]
  - DRY MOUTH [None]
  - NAUSEA [None]
  - VOMITING [None]
